FAERS Safety Report 14623100 (Version 1)
Quarter: 2018Q1

REPORT INFORMATION
  Report Type: Report from Study
  Country: US (occurrence: US)
  Receive Date: 20180311
  Receipt Date: 20180311
  Transmission Date: 20180509
  Serious: Yes (Hospitalization)
  Sender: FDA-Public Use
  Company Number: PHEH2018US009505

PATIENT
  Age: 39 Year
  Sex: Female

DRUGS (1)
  1. GILENYA [Suspect]
     Active Substance: FINGOLIMOD HYDROCHLORIDE
     Indication: MULTIPLE SCLEROSIS
     Dosage: 0.5 MG, QD
     Route: 048
     Dates: start: 201709

REACTIONS (9)
  - Blood pressure increased [Unknown]
  - Dyspnoea [Unknown]
  - Hypotension [Unknown]
  - Electrocardiogram abnormal [Unknown]
  - Hot flush [Unknown]
  - Chest pain [Unknown]
  - Nausea [Unknown]
  - Cardiac disorder [Unknown]
  - Tremor [Unknown]

NARRATIVE: CASE EVENT DATE: 20180215
